FAERS Safety Report 17262755 (Version 3)
Quarter: 2020Q1

REPORT INFORMATION
  Report Type: Spontaneous
  Country: FR (occurrence: FR)
  Receive Date: 20200113
  Receipt Date: 20200201
  Transmission Date: 20200409
  Serious: Yes (Other)
  Sender: FDA-Public Use
  Company Number: NVSC2019FR028442

PATIENT
  Age: 76 Year
  Sex: Male

DRUGS (1)
  1. IMATINIB. [Suspect]
     Active Substance: IMATINIB MESYLATE
     Indication: CHRONIC MYELOID LEUKAEMIA
     Dosage: 400 MG, PER DAY
     Route: 065

REACTIONS (6)
  - Platelet count increased [Unknown]
  - Unmasking of previously unidentified disease [Recovering/Resolving]
  - Myeloproliferative neoplasm [Unknown]
  - Fibrosis [Unknown]
  - Essential thrombocythaemia [Recovering/Resolving]
  - Therapeutic product effect incomplete [Unknown]
